FAERS Safety Report 6290891-4 (Version None)
Quarter: 2009Q3

REPORT INFORMATION
  Report Type: 
  Country: None (occurrence: None)
  Receive Date: 20090728
  Receipt Date: 20090728
  Transmission Date: 20100115
  Serious: Yes (Hospitalization)
  Sender: FDA-Public Use
  Company Number: None

PATIENT
  Age: 68 Year
  Sex: Male
  Weight: 92.9874 kg

DRUGS (1)
  1. OMEPRAZOLE [Suspect]
     Indication: GASTROOESOPHAGEAL REFLUX DISEASE
     Dosage: 20MG ONCE DAILY
     Dates: start: 20090620, end: 20090708

REACTIONS (4)
  - CHEST PAIN [None]
  - COLD SWEAT [None]
  - HOT FLUSH [None]
  - PRODUCT SUBSTITUTION ISSUE [None]
